FAERS Safety Report 18814648 (Version 2)
Quarter: 2024Q3

REPORT INFORMATION
  Report Type: Spontaneous
  Country: DE (occurrence: DE)
  Receive Date: 20210201
  Receipt Date: 20240709
  Transmission Date: 20241016
  Serious: No
  Sender: ASTELLAS
  Company Number: DE-ASTELLAS-2021US003130

PATIENT
  Sex: Female

DRUGS (1)
  1. VESIKUR [Suspect]
     Active Substance: SOLIFENACIN SUCCINATE
     Indication: Product used for unknown indication
     Dosage: UNK UNK, UNKNOWN FREQ.
     Route: 065
     Dates: end: 20210126

REACTIONS (2)
  - Aphasia [Unknown]
  - Speech disorder [Unknown]
